FAERS Safety Report 7588397-5 (Version None)
Quarter: 2011Q3

REPORT INFORMATION
  Report Type: 
  Country: None (occurrence: None)
  Receive Date: 20110705
  Receipt Date: 20110623
  Transmission Date: 20111222
  Serious: Yes (Other)
  Sender: FDA-Public Use
  Company Number: US-US-EMD SERONO, INC.-7067001

PATIENT
  Sex: Female

DRUGS (3)
  1. REBIF [Suspect]
     Indication: MULTIPLE SCLEROSIS
     Dates: start: 20071201, end: 20091001
  2. REBIF [Suspect]
     Dates: start: 20100201
  3. REBIF [Suspect]
     Route: 058
     Dates: start: 20110208

REACTIONS (3)
  - FATIGUE [None]
  - DEPRESSION [None]
  - SELF-INJURIOUS IDEATION [None]
